FAERS Safety Report 6531970-3 (Version None)
Quarter: 2010Q1

REPORT INFORMATION
  Report Type: 
  Country: None (occurrence: None)
  Receive Date: 20100108
  Receipt Date: 20091231
  Transmission Date: 20100710
  Serious: Yes (Hospitalization)
  Sender: FDA-Public Use
  Company Number: US-PFIZER INC-2010000197

PATIENT
  Sex: Female
  Weight: 63.492 kg

DRUGS (7)
  1. LIPITOR [Suspect]
     Indication: BLOOD CHOLESTEROL INCREASED
     Dosage: 20 MG, 1X/DAY
     Route: 048
     Dates: start: 20091201
  2. PLAVIX [Concomitant]
     Indication: ARTERIAL DISORDER
     Dosage: 75 MG DAILY
     Route: 048
  3. COREG [Concomitant]
     Indication: BLOOD PRESSURE INCREASED
     Dosage: 12.5 MG, 2X/DAY
     Route: 048
  4. MIRAPEX [Concomitant]
     Indication: RESTLESS LEGS SYNDROME
     Dosage: 2 TABLETS DAILY,
     Route: 048
  5. MONTELUKAST SODIUM [Concomitant]
     Indication: RHINITIS ALLERGIC
     Dosage: 10 MG DAILY
  6. ACETYLSALICYLIC ACID [Concomitant]
     Indication: BLOOD CHOLESTEROL INCREASED
     Dosage: 325 MG DAILY
     Route: 048
  7. WELLBUTRIN [Concomitant]
     Indication: SMOKING CESSATION THERAPY
     Dosage: 3 TABLETS DAILY,
     Route: 048

REACTIONS (3)
  - CHEST PAIN [None]
  - DYSPEPSIA [None]
  - NAUSEA [None]
